FAERS Safety Report 14195264 (Version 1)
Quarter: 2017Q4

REPORT INFORMATION
  Report Type: Spontaneous
  Country: FR (occurrence: FR)
  Receive Date: 20171116
  Receipt Date: 20171116
  Transmission Date: 20180321
  Serious: Yes (Other)
  Sender: FDA-Public Use
  Company Number: FR-MERCK KGAA-2034304

PATIENT

DRUGS (1)
  1. NOVOTHYROX [Suspect]
     Active Substance: LEVOTHYROXINE SODIUM
     Indication: THYROID CANCER

REACTIONS (7)
  - Amnesia [None]
  - Skin disorder [None]
  - Muscle atrophy [Not Recovered/Not Resolved]
  - Nail disorder [None]
  - Asthenia [None]
  - Hair disorder [None]
  - Depression [None]
